FAERS Safety Report 11367405 (Version 1)
Quarter: 2015Q3

REPORT INFORMATION
  Report Type: Spontaneous
  Country: US (occurrence: US)
  Receive Date: 20150811
  Receipt Date: 20150811
  Transmission Date: 20151125
  Serious: No
  Sender: FDA-Public Use
  Company Number: US-ELI_LILLY_AND_COMPANY-US201203007308

PATIENT
  Sex: Male

DRUGS (1)
  1. AXIRON [Suspect]
     Active Substance: TESTOSTERONE
     Indication: BLOOD TESTOSTERONE DECREASED
     Dosage: UNK, QD, TWO PUMPS A DAY
     Dates: start: 201112

REACTIONS (7)
  - Testicular atrophy [Recovered/Resolved]
  - Night sweats [Recovered/Resolved]
  - Weight decreased [Not Recovered/Not Resolved]
  - Orgasm abnormal [Unknown]
  - Feeling abnormal [Recovered/Resolved]
  - Nephrolithiasis [Unknown]
  - Erectile dysfunction [Recovered/Resolved]
